FAERS Safety Report 23047061 (Version 1)
Quarter: 2023Q4

REPORT INFORMATION
  Report Type: Spontaneous
  Country: PR (occurrence: PR)
  Receive Date: 20231009
  Receipt Date: 20231009
  Transmission Date: 20240110
  Serious: No
  Sender: FDA-Public Use
  Company Number: PR-JNJFOC-20231019000

PATIENT
  Age: 73 Year
  Sex: Male
  Weight: 78.47 kg

DRUGS (1)
  1. ERLEADA [Suspect]
     Active Substance: APALUTAMIDE
     Indication: Product used for unknown indication
     Dosage: 60MG 4TABLET DAILY
     Route: 048

REACTIONS (1)
  - Oral infection [Recovering/Resolving]

NARRATIVE: CASE EVENT DATE: 20231001
